FAERS Safety Report 7490911-5 (Version None)
Quarter: 2011Q2

REPORT INFORMATION
  Report Type: 
  Country: None (occurrence: None)
  Receive Date: 20110517
  Receipt Date: 20110517
  Transmission Date: 20111010
  Serious: No
  Sender: FDA-Public Use
  Company Number: None

PATIENT
  Sex: Male
  Weight: 69.5 kg

DRUGS (1)
  1. HEPARIN [Suspect]
     Indication: ARTERIAL STENT INSERTION
     Dates: start: 20110516, end: 20110516

REACTIONS (3)
  - THROMBOSIS IN DEVICE [None]
  - PRODUCT QUALITY ISSUE [None]
  - COAGULATION TIME SHORTENED [None]
